FAERS Safety Report 21418432 (Version 3)
Quarter: 2022Q4

REPORT INFORMATION
  Report Type: Spontaneous
  Country: US (occurrence: US)
  Receive Date: 20221006
  Receipt Date: 20221019
  Transmission Date: 20230113
  Serious: No
  Sender: FDA-Public Use
  Company Number: US-LUPIN PHARMACEUTICALS INC.-2022-11634

PATIENT
  Sex: Female

DRUGS (1)
  1. RIFAMPIN [Suspect]
     Active Substance: RIFAMPIN
     Indication: Tuberculosis
     Dosage: UNK UNK, QD (OPENED THE CAPSULE AND PUT THE CONTENT OF CAPSULE IN BEVERAGE (JUICE OR JAGGERY)
     Route: 065

REACTIONS (3)
  - Recalled product administered [Unknown]
  - Wrong technique in product usage process [Unknown]
  - No adverse event [Unknown]
